FAERS Safety Report 12966404 (Version 1)
Quarter: 2016Q4

REPORT INFORMATION
  Report Type: Spontaneous
  Country: US (occurrence: US)
  Receive Date: 20161118
  Receipt Date: 20161118
  Transmission Date: 20170207
  Serious: Yes (Death)
  Sender: FDA-Public Use
  Company Number: None

PATIENT
  Age: 98 Year
  Sex: Male

DRUGS (3)
  1. ADCIRCA [Suspect]
     Active Substance: TADALAFIL
     Indication: CONGENITAL PULMONARY ARTERY ANOMALY
  2. ADCIRCA [Suspect]
     Active Substance: TADALAFIL
     Indication: PULMONARY ARTERIAL HYPERTENSION
  3. ADCIRCA [Suspect]
     Active Substance: TADALAFIL
     Indication: ESSENTIAL HYPERTENSION

REACTIONS (1)
  - Death [None]

NARRATIVE: CASE EVENT DATE: 20161105
